FAERS Safety Report 7452216-8 (Version None)
Quarter: 2011Q2

REPORT INFORMATION
  Report Type: 
  Country: None (occurrence: None)
  Receive Date: 20110502
  Receipt Date: 20110419
  Transmission Date: 20111010
  Serious: Yes (Other)
  Sender: FDA-Public Use
  Company Number: JP-GENENTECH-312410

PATIENT
  Sex: Male

DRUGS (12)
  1. FLUTICASONE PROPIONATE [Concomitant]
     Indication: PRODUCT USED FOR UNKNOWN INDICATION
  2. HOKUNALIN [Concomitant]
     Indication: PRODUCT USED FOR UNKNOWN INDICATION
  3. MEPTIN [Concomitant]
     Indication: PRODUCT USED FOR UNKNOWN INDICATION
  4. ALOSENN (UNK INGREDIENTS) [Concomitant]
     Indication: PRODUCT USED FOR UNKNOWN INDICATION
  5. OMALIZUMAB [Suspect]
     Indication: ASTHMA
     Dosage: UNK
     Route: 058
     Dates: start: 20090608
  6. OMALIZUMAB [Suspect]
     Dosage: UNK
     Dates: start: 20101220
  7. DORAL [Concomitant]
     Indication: PRODUCT USED FOR UNKNOWN INDICATION
  8. LAXOBERON [Concomitant]
     Indication: PRODUCT USED FOR UNKNOWN INDICATION
  9. MYSLEE [Concomitant]
     Indication: PRODUCT USED FOR UNKNOWN INDICATION
  10. HALCION [Concomitant]
     Indication: PRODUCT USED FOR UNKNOWN INDICATION
  11. SULTANOL [Concomitant]
     Indication: PRODUCT USED FOR UNKNOWN INDICATION
  12. PENTOBARBITAL CAP [Concomitant]
     Indication: PRODUCT USED FOR UNKNOWN INDICATION

REACTIONS (3)
  - ERYTHEMA [None]
  - PAIN IN EXTREMITY [None]
  - EXTREMITY NECROSIS [None]
